FAERS Safety Report 13574582 (Version 1)
Quarter: 2017Q2

REPORT INFORMATION
  Report Type: Spontaneous
  Country: US (occurrence: US)
  Receive Date: 20170523
  Receipt Date: 20170523
  Transmission Date: 20170830
  Serious: Yes (Hospitalization)
  Sender: FDA-Public Use
  Company Number: US-SA-2016SA165484

PATIENT
  Age: 55 Year
  Sex: Female

DRUGS (8)
  1. FLUORO-URACIL [Concomitant]
     Active Substance: FLUOROURACIL
     Route: 065
     Dates: start: 20160712, end: 20160712
  2. FOLINIC ACID [Concomitant]
     Active Substance: LEUCOVORIN
     Route: 065
     Dates: start: 20160712, end: 20160712
  3. FLUORO-URACIL [Concomitant]
     Active Substance: FLUOROURACIL
     Route: 065
     Dates: start: 20160726, end: 20160726
  4. ELOXATIN [Suspect]
     Active Substance: OXALIPLATIN
     Indication: COLON CANCER
     Route: 065
     Dates: start: 20160712, end: 20160712
  5. ELOXATIN [Suspect]
     Active Substance: OXALIPLATIN
     Indication: COLECTOMY
     Route: 065
     Dates: start: 20160712, end: 20160712
  6. ELOXATIN [Suspect]
     Active Substance: OXALIPLATIN
     Indication: COLON CANCER
     Route: 065
     Dates: start: 20160726, end: 20160726
  7. ELOXATIN [Suspect]
     Active Substance: OXALIPLATIN
     Indication: COLECTOMY
     Route: 065
     Dates: start: 20160726, end: 20160726
  8. FOLINIC ACID [Concomitant]
     Active Substance: LEUCOVORIN
     Route: 065
     Dates: start: 20160726, end: 20160726

REACTIONS (3)
  - Dizziness [Unknown]
  - Pulmonary embolism [Unknown]
  - Headache [Unknown]

NARRATIVE: CASE EVENT DATE: 20160806
